FAERS Safety Report 4399505-1 (Version None)
Quarter: 2004Q3

REPORT INFORMATION
  Report Type: 
  Country: None (occurrence: None)
  Receive Date: 20040716
  Receipt Date: 20040707
  Transmission Date: 20050211
  Serious: Yes (Death, Hospitalization, Other)
  Sender: FDA-Public Use
  Company Number: AT-BRISTOL-MYERS SQUIBB COMPANY-12633384

PATIENT
  Age: 66 Year
  Sex: Female

DRUGS (6)
  1. CARBOPLATIN [Suspect]
     Indication: OVARIAN CANCER
     Route: 042
     Dates: start: 20030502, end: 20030617
  2. PACLITAXEL [Suspect]
     Indication: OVARIAN CANCER
     Route: 042
     Dates: start: 20030502, end: 20030617
  3. SELOKEEN [Concomitant]
     Dates: start: 19980101
  4. PANTOLOC [Concomitant]
     Dates: start: 20030405
  5. REQUIP [Concomitant]
     Dates: start: 20030517
  6. MOVICOL [Concomitant]
     Dates: start: 20030707

REACTIONS (4)
  - CENTRAL LINE INFECTION [None]
  - HYDRONEPHROSIS [None]
  - OVARIAN CANCER [None]
  - SUBILEUS [None]
